FAERS Safety Report 9731643 (Version 1)
Quarter: 2013Q4

REPORT INFORMATION
  Report Type: Spontaneous
  Country: DE (occurrence: DE)
  Receive Date: 20131205
  Receipt Date: 20131205
  Transmission Date: 20140711
  Serious: Yes (Other)
  Sender: FDA-Public Use
  Company Number: DE-ROCHE-1313254

PATIENT
  Age: 40 Year
  Sex: Female

DRUGS (3)
  1. PERJETA [Suspect]
     Indication: BREAST CANCER METASTATIC
     Route: 065
  2. HERCEPTIN [Concomitant]
     Indication: BREAST CANCER METASTATIC
     Route: 065
  3. DOCETAXEL [Concomitant]
     Indication: BREAST CANCER METASTATIC

REACTIONS (1)
  - Diarrhoea haemorrhagic [Recovered/Resolved]
